FAERS Safety Report 7703634-1 (Version None)
Quarter: 2011Q3

REPORT INFORMATION
  Report Type: 
  Country: None (occurrence: None)
  Receive Date: 20110823
  Receipt Date: 20110816
  Transmission Date: 20111222
  Serious: Yes (Hospitalization)
  Sender: FDA-Public Use
  Company Number: NL-BAXTER-2011BH018945

PATIENT
  Age: 22 Year
  Sex: Male

DRUGS (6)
  1. GAMMAGARD LIQUID [Suspect]
     Indication: BRUTON'S AGAMMAGLOBULINAEMIA
     Route: 042
     Dates: start: 20110603
  2. GAMMAGARD LIQUID [Suspect]
     Route: 042
     Dates: start: 20101008
  3. GAMMAGARD LIQUID [Suspect]
     Route: 042
     Dates: start: 20110603
  4. GAMMAGARD LIQUID [Suspect]
     Route: 042
     Dates: start: 20101008
  5. GAMMAGARD LIQUID [Suspect]
     Route: 042
     Dates: start: 20101008
  6. GAMMAGARD LIQUID [Suspect]
     Route: 042
     Dates: start: 20110603

REACTIONS (3)
  - ABDOMINAL PAIN [None]
  - WEIGHT DECREASED [None]
  - DECREASED APPETITE [None]
